FAERS Safety Report 9149240 (Version 1)
Quarter: 2013Q1

REPORT INFORMATION
  Report Type: Spontaneous
  Country: JP (occurrence: None)
  Receive Date: 20130130
  Receipt Date: 20130130
  Transmission Date: 20140127
  Serious: Yes (Hospitalization)
  Sender: FDA-Public Use
  Company Number: 2013SP001442

PATIENT
  Age: 59 Year
  Sex: Male

DRUGS (2)
  1. FLUOROURACIL (FLUOROURACIL) [Suspect]
     Indication: NASOPHARYNGEAL CANCER
  2. CISPLATIN [Suspect]
     Indication: NASOPHARYNGEAL CANCER

REACTIONS (2)
  - Dropped head syndrome [None]
  - Mucosal inflammation [None]
